FAERS Safety Report 7071371-5 (Version None)
Quarter: 2010Q4

REPORT INFORMATION
  Report Type: 
  Country: None (occurrence: None)
  Receive Date: 20101029
  Receipt Date: 20100913
  Transmission Date: 20110411
  Serious: No
  Sender: FDA-Public Use
  Company Number: A0579262A

PATIENT
  Sex: Male

DRUGS (6)
  1. ADVAIR DISKUS 100/50 [Suspect]
     Indication: EMPHYSEMA
     Dosage: 1PUFF TWICE PER DAY
     Route: 055
     Dates: start: 20040101
  2. COMBIVENT [Concomitant]
  3. LISINOPRIL [Concomitant]
  4. VYTORIN [Concomitant]
  5. CARVEDILOL [Concomitant]
  6. HYDROCHLOROTHIAZIDE [Concomitant]

REACTIONS (7)
  - ANXIETY [None]
  - DRUG INEFFECTIVE [None]
  - DYSPNOEA [None]
  - ILL-DEFINED DISORDER [None]
  - PRODUCT QUALITY ISSUE [None]
  - PRODUCT TASTE ABNORMAL [None]
  - THERAPEUTIC RESPONSE DECREASED [None]
